FAERS Safety Report 5276570-0 (Version None)
Quarter: 2007Q1

REPORT INFORMATION
  Report Type: 
  Country: None (occurrence: None)
  Receive Date: 20070327
  Receipt Date: 20070314
  Transmission Date: 20070707
  Serious: Yes (Hospitalization)
  Sender: FDA-Public Use
  Company Number: FR-JNJFOC-20070104136

PATIENT
  Age: 39 Year
  Sex: Female
  Weight: 98 kg

DRUGS (6)
  1. REMICADE [Suspect]
     Dosage: TOTAL OF 3 INFUSIONS ADMINISTERED.
     Route: 042
  2. REMICADE [Suspect]
     Dosage: TOTAL OF 3 INFUSIONS ADMINISTERED.
     Route: 042
  3. REMICADE [Suspect]
     Dosage: TOTAL OF 3 INFUSIONS ADMINISTERED.
     Route: 042
  4. REMICADE [Suspect]
     Indication: PUSTULAR PSORIASIS
     Dosage: TOTAL OF 3 INFUSIONS ADMINISTERED.
     Route: 042
  5. IMPLANON [Concomitant]
     Indication: CONTRACEPTION
     Route: 058
  6. DERMOVAL [Concomitant]
     Indication: PUSTULAR PSORIASIS
     Route: 061

REACTIONS (4)
  - CYTOMEGALOVIRUS HEPATITIS [None]
  - DRUG INEFFECTIVE [None]
  - DRUG INTOLERANCE [None]
  - JAUNDICE [None]
